FAERS Safety Report 9086139 (Version 1)
Quarter: 2013Q1

REPORT INFORMATION
  Report Type: Report from Study
  Country: US (occurrence: US)
  Receive Date: 20130131
  Receipt Date: 20130131
  Transmission Date: 20140127
  Serious: No
  Sender: FDA-Public Use
  Company Number: US-ABBOTT-12P-163-1010658-00

PATIENT
  Age: 44 Year
  Sex: Female

DRUGS (11)
  1. HUMIRA [Suspect]
     Indication: PSORIASIS
     Route: 058
     Dates: start: 20121026, end: 20121026
  2. HUMIRA [Suspect]
     Route: 058
     Dates: start: 20121102
  3. NORVASC [Concomitant]
     Indication: BLOOD PRESSURE
  4. LUVOX [Concomitant]
     Indication: OBSESSIVE-COMPULSIVE DISORDER
  5. CELEXA [Concomitant]
     Indication: DEPRESSION
  6. ASPIRIN [Concomitant]
     Indication: PRODUCT USED FOR UNKNOWN INDICATION
     Dosage: 81MG DAILY
  7. VITAMIN A [Concomitant]
     Indication: PRODUCT USED FOR UNKNOWN INDICATION
  8. CALCIUM [Concomitant]
     Indication: PRODUCT USED FOR UNKNOWN INDICATION
  9. VITAMIN D [Concomitant]
     Indication: PRODUCT USED FOR UNKNOWN INDICATION
  10. ZYRTEC [Concomitant]
     Indication: HYPERSENSITIVITY
  11. SYNTHROID [Concomitant]
     Indication: THYROID DISORDER

REACTIONS (1)
  - Injection site bruising [Recovering/Resolving]
